FAERS Safety Report 7219758-1 (Version None)
Quarter: 2011Q1

REPORT INFORMATION
  Report Type: 
  Country: None (occurrence: None)
  Receive Date: 20110111
  Receipt Date: 20110106
  Transmission Date: 20110831
  Serious: Yes (Death, Hospitalization)
  Sender: FDA-Public Use
  Company Number: US-JNJFOC-20110101551

PATIENT
  Age: 35 Year
  Sex: Female

DRUGS (7)
  1. DIPHENHYDRAMINE [Suspect]
     Indication: PRODUCT USED FOR UNKNOWN INDICATION
  2. OXYCODONE [Suspect]
     Indication: PRODUCT USED FOR UNKNOWN INDICATION
  3. VENLAFAXINE [Suspect]
     Indication: ILL-DEFINED DISORDER
  4. HYDROMORPHONE HCL [Suspect]
     Indication: PRODUCT USED FOR UNKNOWN INDICATION
  5. OXYMORPHONE [Suspect]
     Indication: PRODUCT USED FOR UNKNOWN INDICATION
  6. CYCLOBENZAPRINE [Suspect]
     Indication: PRODUCT USED FOR UNKNOWN INDICATION
  7. DIPHENHYDRAMINE [Suspect]

REACTIONS (1)
  - TOXICITY TO VARIOUS AGENTS [None]
